FAERS Safety Report 5856514-0 (Version None)
Quarter: 2008Q3

REPORT INFORMATION
  Report Type: 
  Country: None (occurrence: None)
  Receive Date: 20080825
  Receipt Date: 20080728
  Transmission Date: 20090109
  Serious: No
  Sender: FDA-Public Use
  Company Number: A0737725A

PATIENT
  Age: 42 Year
  Sex: Male

DRUGS (2)
  1. VERAMYST [Suspect]
     Route: 045
     Dates: start: 20080601, end: 20080601
  2. HYDROCHLOROTHIAZIDE [Concomitant]

REACTIONS (5)
  - DRUG INEFFECTIVE [None]
  - EYE PRURITUS [None]
  - POSTNASAL DRIP [None]
  - RESPIRATORY DISORDER [None]
  - RHINITIS [None]
